FAERS Safety Report 5273757-8 (Version None)
Quarter: 2007Q1

REPORT INFORMATION
  Report Type: 
  Country: None (occurrence: None)
  Receive Date: 20070321
  Receipt Date: 20070321
  Transmission Date: 20070707
  Serious: No
  Sender: FDA-Public Use
  Company Number: None

PATIENT
  Age: 49 Year
  Sex: Female

DRUGS (1)
  1. OPTIRAY 350 [Suspect]
     Dosage: 100ML 2CC/SEC IV
     Route: 042
     Dates: start: 20070308

REACTIONS (2)
  - CHEST DISCOMFORT [None]
  - DYSPNOEA [None]
